FAERS Safety Report 6244041-0 (Version None)
Quarter: 2009Q2

REPORT INFORMATION
  Report Type: 
  Country: None (occurrence: None)
  Receive Date: 20090625
  Receipt Date: 20071009
  Transmission Date: 20091009
  Serious: Yes (Other)
  Sender: FDA-Public Use
  Company Number: US-ASTRAZENECA-2006UW23256

PATIENT
  Age: 18 Year
  Sex: Female
  Weight: 109.8 kg

DRUGS (60)
  1. SEROQUEL [Suspect]
     Indication: DEPRESSION
     Route: 048
     Dates: start: 20040101, end: 20050101
  2. SEROQUEL [Suspect]
     Indication: POST-TRAUMATIC STRESS DISORDER
     Route: 048
     Dates: start: 20040101, end: 20050101
  3. SEROQUEL [Suspect]
     Route: 048
     Dates: end: 20040413
  4. SEROQUEL [Suspect]
     Route: 048
     Dates: end: 20040413
  5. SEROQUEL [Suspect]
     Route: 048
     Dates: start: 20050323
  6. SEROQUEL [Suspect]
     Route: 048
     Dates: start: 20050323
  7. RISPERDAL [Concomitant]
     Dates: start: 20050414
  8. LONAMIN [Concomitant]
     Dates: start: 20040101
  9. MERICLIA [Concomitant]
     Dates: start: 20050101
  10. ALPRAZOLAM [Concomitant]
     Dates: start: 20041217
  11. DIAZEPAM [Concomitant]
     Dates: start: 20050304
  12. DIAZEPAM [Concomitant]
     Dosage: 5 MG/ML
     Dates: start: 20050304
  13. MIDAZOLAM HCL [Concomitant]
     Dosage: 5 MG/ML
     Dates: start: 20050304
  14. ACETAMINOPHEN [Concomitant]
     Dates: start: 20050305
  15. TOPROL-XL [Concomitant]
     Dosage: 25-50 MG DAILY
     Route: 048
     Dates: start: 20050305
  16. METOPROLOL TARTRATE [Concomitant]
     Dosage: 1 MG/ML
     Dates: start: 20070825
  17. METOPROLOL TARTRATE [Concomitant]
     Dates: start: 20070219
  18. ENOXAPARIN SODIUM [Concomitant]
     Dosage: 40 MG/0.4 ML
     Dates: start: 20050304
  19. FENTANYL [Concomitant]
     Dosage: 0.05 MG/ML
     Dates: start: 20050304
  20. HYDROCODONE COMPOU [Concomitant]
     Dates: start: 20030121
  21. HYDROCODONE 200/7 [Concomitant]
     Dates: start: 20040817
  22. HYDROCODONE BITARTRATE + ACETAMINOPHEN [Concomitant]
     Indication: PAIN
     Dosage: 5 MG/500 MG 1-2 TAB EVERY 4 HOURS
     Dates: start: 20051209
  23. ORTHO TRI-CYCLEN LO [Concomitant]
     Dates: start: 20031210
  24. DILAUDID [Concomitant]
     Dosage: 1 MG, 2 MG/ML
     Route: 042
     Dates: start: 20051102
  25. PHENERGAN [Concomitant]
     Dosage: 12.5 MG, 25 MG/ML
     Route: 042
     Dates: start: 20060322
  26. PHENERGAN [Concomitant]
     Route: 030
     Dates: start: 20051102
  27. MERIDIA [Concomitant]
     Dosage: 10-15 MG
     Dates: start: 20040214, end: 20040930
  28. ALBUTEROL [Concomitant]
     Dosage: 90 MCG, 0.83 MG, 2 PUFFS 3-4 TIMES DAILY
     Dates: start: 20000115
  29. CLARINEX [Concomitant]
     Route: 048
     Dates: start: 20030924
  30. SULFAMETHOXAZOLE/T [Concomitant]
     Dates: start: 20040330
  31. SINGULAIR [Concomitant]
     Dosage: 5-10 MG
     Route: 048
     Dates: start: 20000115
  32. DEXAMETHASONE [Concomitant]
     Dates: start: 20040408
  33. OXYCODONE AND ACETAMINOPHEN [Concomitant]
     Dosage: 1-2 CAP EVERY 4 HOURS
     Dates: start: 20031004
  34. ADVAIR DISKUS 100/50 [Concomitant]
     Dosage: 100/50
     Dates: start: 20010507
  35. NASONEX [Concomitant]
     Dates: start: 20010507
  36. PHENTERMINE [Concomitant]
     Dates: start: 20040603
  37. PHENTERMINE HCL [Concomitant]
  38. MEDROXYPROGESTERONE [Concomitant]
     Dates: start: 20050516
  39. PREDNISONE [Concomitant]
     Dates: start: 20030121
  40. BUTALBITAL/APAP/CA [Concomitant]
     Dates: start: 20050929
  41. MEPERIDINE HCL [Concomitant]
     Dosage: 50 MG/ML TUBEX
     Dates: start: 20060420
  42. MEPERIDINE HCL [Concomitant]
     Dates: start: 20051105
  43. AMITREX LA [Concomitant]
     Dates: start: 20060118
  44. CYCLOBENZAPRINE [Concomitant]
     Dosage: 5 M
     Dates: start: 20060207
  45. EPIPEN [Concomitant]
     Dosage: 0.3 MG AUTO
     Dates: start: 20030424
  46. XOPENEX [Concomitant]
     Dosage: 0.63 MG/3 ML
     Dates: start: 20040802
  47. YASMIN [Concomitant]
     Indication: CONTRACEPTION
     Dates: start: 20040817
  48. HEMOCYTE-F [Concomitant]
     Dates: start: 20040817
  49. VERAPAMIL SA [Concomitant]
     Dates: start: 20041109
  50. PAXIL CR [Concomitant]
     Dates: start: 20041112, end: 20041217
  51. SKELAXIN [Concomitant]
     Dates: start: 20050113
  52. DEPAKOTE ER [Concomitant]
     Dates: start: 20050223
  53. CYMBALTA [Concomitant]
     Dosage: 30-60 MG DAILY
     Dates: start: 20050126, end: 20050503
  54. BENZTROPINE MES [Concomitant]
     Dosage: 1 M
     Dates: start: 20050427
  55. METFORMIN HCL [Concomitant]
     Indication: POLYCYSTIC OVARIES
     Route: 048
     Dates: start: 20060202, end: 20060503
  56. METFORMIN HCL [Concomitant]
     Route: 048
     Dates: start: 20060723
  57. SPIRONOLACT/HCT [Concomitant]
     Dates: start: 20060222
  58. NEXIUM [Concomitant]
     Dates: start: 20060322
  59. LASIX [Concomitant]
     Route: 048
     Dates: start: 20060525
  60. LEXAPRO [Concomitant]
     Indication: GENERALISED ANXIETY DISORDER
     Dosage: 10-20 MG DAILY
     Dates: start: 20060503

REACTIONS (10)
  - CHOLECYSTECTOMY [None]
  - DIABETES MELLITUS [None]
  - DIABETES MELLITUS INADEQUATE CONTROL [None]
  - GASTRIC DISORDER [None]
  - GLUCOSE TOLERANCE IMPAIRED [None]
  - HYPERGLYCAEMIA [None]
  - HYPERINSULINAEMIA [None]
  - METABOLIC SYNDROME [None]
  - OBESITY [None]
  - WEIGHT INCREASED [None]
